FAERS Safety Report 15417033 (Version 3)
Quarter: 2018Q4

REPORT INFORMATION
  Report Type: Spontaneous
  Country: JP (occurrence: JP)
  Receive Date: 20180924
  Receipt Date: 20181212
  Transmission Date: 20190204
  Serious: Yes (Death, Life-Threatening, Hospitalization, Other)
  Sender: FDA-Public Use
  Company Number: JP-BRISTOL-MYERS SQUIBB COMPANY-BMS-2018-074394

PATIENT
  Age: 69 Year
  Sex: Male
  Weight: 58 kg

DRUGS (6)
  1. BROTIZOLAM [Concomitant]
     Active Substance: BROTIZOLAM
     Indication: INSOMNIA
     Dosage: 0.25 MG, QD
     Route: 048
     Dates: end: 20180807
  2. OXYCONTIN [Suspect]
     Active Substance: OXYCODONE HYDROCHLORIDE
     Indication: CANCER PAIN
     Dosage: 5 MG, Q12H
     Route: 048
     Dates: start: 20180801, end: 20180807
  3. UNISIA [Concomitant]
     Active Substance: AMLODIPINE BESYLATE\CANDESARTAN CILEXETIL
     Indication: HYPERTENSION
     Dosage: UNK UNK, QD
     Route: 048
     Dates: end: 20180807
  4. ACETAMINOPHEN. [Concomitant]
     Active Substance: ACETAMINOPHEN
     Indication: CANCER PAIN
     Dosage: 400 MG, PRN
     Route: 065
     Dates: start: 20170725, end: 20180811
  5. OPDIVO [Suspect]
     Active Substance: NIVOLUMAB
     Indication: GASTRIC CANCER RECURRENT
     Dosage: 3 MG/KG, UNK
     Route: 041
     Dates: start: 20180720, end: 20180720
  6. PARIET [Concomitant]
     Active Substance: RABEPRAZOLE SODIUM
     Indication: GASTROOESOPHAGEAL REFLUX DISEASE
     Dosage: 10 MG, QD
     Route: 048
     Dates: end: 20180807

REACTIONS (7)
  - Malignant neoplasm progression [Fatal]
  - Intestinal obstruction [Recovering/Resolving]
  - Pericardial effusion [Not Recovered/Not Resolved]
  - Pleural effusion [Not Recovered/Not Resolved]
  - Sepsis [Recovering/Resolving]
  - Tumour rupture [Not Recovered/Not Resolved]
  - Peritonitis [Recovering/Resolving]

NARRATIVE: CASE EVENT DATE: 20180806
